FAERS Safety Report 21357157 (Version 3)
Quarter: 2022Q4

REPORT INFORMATION
  Report Type: Report from Study
  Country: US (occurrence: US)
  Receive Date: 20220921
  Receipt Date: 20221007
  Transmission Date: 20230113
  Serious: Yes (Other)
  Sender: FDA-Public Use
  Company Number: US-ABBVIE-4127229

PATIENT
  Sex: Female

DRUGS (4)
  1. HUMIRA [Suspect]
     Active Substance: ADALIMUMAB
     Indication: Psoriatic arthropathy
     Dosage: CITRATE FREE
     Route: 058
     Dates: end: 202201
  2. HUMIRA [Suspect]
     Active Substance: ADALIMUMAB
     Route: 058
     Dates: start: 202209
  3. Pfizer/BioNTech [Concomitant]
     Indication: COVID-19 immunisation
     Dosage: FIRST DOSE/ ONE IN ONE DAY
     Route: 030
     Dates: start: 20210501, end: 20210501
  4. Pfizer/BioNTech [Concomitant]
     Indication: COVID-19 immunisation
     Dosage: SECOND  DOSE/ ONE IN ONE DAY
     Route: 030
     Dates: start: 20210603, end: 20210603

REACTIONS (6)
  - Surgery [Recovering/Resolving]
  - Therapeutic product effect decreased [Unknown]
  - Inflammation [Recovering/Resolving]
  - Feeling abnormal [Recovering/Resolving]
  - Psoriatic arthropathy [Not Recovered/Not Resolved]
  - Pain [Unknown]

NARRATIVE: CASE EVENT DATE: 20220101
